FAERS Safety Report 19526097 (Version 1)
Quarter: 2021Q3

REPORT INFORMATION
  Report Type: Spontaneous
  Country: US (occurrence: US)
  Receive Date: 20210713
  Receipt Date: 20210713
  Transmission Date: 20211014
  Serious: Yes (Other)
  Sender: FDA-Public Use
  Company Number: US-TEVA-2021-US-1931399

PATIENT
  Age: 9 Year
  Sex: Female

DRUGS (2)
  1. ETOPOSIDE. [Suspect]
     Active Substance: ETOPOSIDE
     Indication: GERM CELL CANCER
     Dosage: RECEIVED 3 CYCLES
     Route: 065
  2. CARBOPLATIN. [Suspect]
     Active Substance: CARBOPLATIN
     Indication: GERM CELL CANCER
     Dosage: RECEIVED 3 CYCLES
     Route: 065

REACTIONS (6)
  - Febrile neutropenia [Unknown]
  - Clostridium difficile infection [Unknown]
  - Bacterial tracheitis [Unknown]
  - Epiglottitis [Unknown]
  - Bacterial infection [Unknown]
  - Cerebrovascular accident [Unknown]
